FAERS Safety Report 18796929 (Version 2)
Quarter: 2023Q2

REPORT INFORMATION
  Report Type: Report from Study
  Country: DE (occurrence: DE)
  Receive Date: 20210127
  Receipt Date: 20230518
  Transmission Date: 20230722
  Serious: Yes (Hospitalization)
  Sender: FDA-Public Use
  Company Number: DE-BEIGENE AUS PTY LTD-BGN-2020-001045

PATIENT

DRUGS (14)
  1. TISLELIZUMAB [Suspect]
     Active Substance: TISLELIZUMAB
     Indication: Richter^s syndrome
     Dosage: 200 MILLIGRAM
     Route: 042
     Dates: start: 20200325
  2. ZANUBRUTINIB [Suspect]
     Active Substance: ZANUBRUTINIB
     Indication: Richter^s syndrome
     Dosage: 320 MILLIGRAM
     Route: 048
     Dates: start: 20200325
  3. ZANUBRUTINIB [Suspect]
     Active Substance: ZANUBRUTINIB
     Dosage: UNK
  4. METOPROLOL [Concomitant]
     Active Substance: METOPROLOL
  5. TORSEMIDE [Concomitant]
     Active Substance: TORSEMIDE
  6. CANDESARTAN [Concomitant]
     Active Substance: CANDESARTAN
  7. LEVOTHYROXINE SODIUM [Concomitant]
     Active Substance: LEVOTHYROXINE SODIUM
  8. ACYCLOVIR [Concomitant]
     Active Substance: ACYCLOVIR
  9. SULFAMETHOXAZOLE\TRIMETHOPRIM [Concomitant]
     Active Substance: SULFAMETHOXAZOLE\TRIMETHOPRIM
  10. AMPHOTERICIN B [Concomitant]
     Active Substance: AMPHOTERICIN B
  11. PANTOZOL [Concomitant]
     Active Substance: PANTOPRAZOLE SODIUM
  12. ENOXAPARIN SODIUM [Concomitant]
     Active Substance: ENOXAPARIN SODIUM
  13. ALBUTEROL [Concomitant]
     Active Substance: ALBUTEROL
  14. ASPIRIN [Concomitant]
     Active Substance: ASPIRIN

REACTIONS (1)
  - Chronic gastritis [Recovered/Resolved]

NARRATIVE: CASE EVENT DATE: 20200618
